FAERS Safety Report 14450200 (Version 4)
Quarter: 2019Q2

REPORT INFORMATION
  Report Type: Report from Study
  Country: DE (occurrence: DE)
  Receive Date: 20180129
  Receipt Date: 20190429
  Transmission Date: 20190711
  Serious: Yes (Death, Hospitalization)
  Sender: FDA-Public Use
  Company Number: DE-ROCHE-2047668

PATIENT
  Age: 61 Year
  Sex: Female
  Weight: 66 kg

DRUGS (16)
  1. METOCLOPRAMID [METOCLOPRAMIDE] [Concomitant]
     Active Substance: METOCLOPRAMIDE
     Indication: VOMITING
  2. METAMIZOL [Concomitant]
     Active Substance: METAMIZOLE SODIUM
     Indication: PAIN
     Route: 065
     Dates: start: 20170807
  3. PANTOZOL [Concomitant]
     Active Substance: PANTOPRAZOLE SODIUM
     Indication: PROPHYLAXIS
     Route: 065
     Dates: start: 20170710
  4. METOCLOPRAMID [METOCLOPRAMIDE] [Concomitant]
     Active Substance: METOCLOPRAMIDE
     Indication: NAUSEA
     Route: 065
     Dates: start: 20170807
  5. VINORELBINE [Suspect]
     Active Substance: VINORELBINE\VINORELBINE TARTRATE
     Indication: NON-SMALL CELL LUNG CANCER
     Dosage: DATE OF MOST RECENT DOSE OF VINORELBINE PRIOR TO AE ONSET 19 OCT 2017?DOSE OF LAST VINORELBINE ADMIN
     Route: 042
     Dates: start: 20170804
  6. COTRIM FORTE [Concomitant]
     Active Substance: SULFAMETHOXAZOLE\TRIMETHOPRIM
     Indication: ANTIFUNGAL PROPHYLAXIS
     Route: 065
     Dates: start: 20171229
  7. TARGIN [Concomitant]
     Active Substance: NALOXONE HYDROCHLORIDE\OXYCODONE HYDROCHLORIDE
     Indication: CHEST PAIN
     Route: 065
     Dates: start: 20170710
  8. ZOFRAN [Concomitant]
     Active Substance: ONDANSETRON HYDROCHLORIDE
     Indication: NAUSEA
     Route: 065
     Dates: start: 20170807
  9. LEVOFLOXACIN. [Concomitant]
     Active Substance: LEVOFLOXACIN
     Indication: INFECTION PROPHYLAXIS
     Route: 065
     Dates: start: 20171229
  10. OXYGEN. [Concomitant]
     Active Substance: OXYGEN
     Indication: RESPIRATORY FAILURE
     Route: 065
     Dates: start: 20180104
  11. ATEZOLIZUMAB. [Suspect]
     Active Substance: ATEZOLIZUMAB
     Indication: NON-SMALL CELL LUNG CANCER
     Dosage: DATE OF MOST RECENT DOSE OF MPDL3280A PRIOR TO AE ONSET 12 DEC 2017?DOSE OF LAST MPDL3280A ADMINISTE
     Route: 042
     Dates: start: 20171116
  12. CISPLATIN. [Suspect]
     Active Substance: CISPLATIN
     Indication: NON-SMALL CELL LUNG CANCER
     Dosage: DATE OF MOST RECENT DOSE OF CISPLATIN PRIOR TO AE ONSET 11 OCT 2017?DOSE OF LAST CISPLATIN ADMINISTE
     Route: 042
     Dates: start: 20170804
  13. IBUPROFEN. [Concomitant]
     Active Substance: IBUPROFEN
     Indication: CHEST PAIN
     Route: 065
     Dates: start: 20170710
  14. CLEXANE [Concomitant]
     Active Substance: ENOXAPARIN SODIUM
     Indication: THROMBOSIS PROPHYLAXIS
     Route: 065
     Dates: start: 20171227
  15. BELOC ZOK MITE [Concomitant]
     Active Substance: METOPROLOL SUCCINATE
     Indication: HYPERTENSION
     Route: 065
     Dates: start: 20170710
  16. AMLODIPIN [AMLODIPINE] [Concomitant]
     Indication: HYPERTENSION
     Route: 065
     Dates: start: 20170807

REACTIONS (2)
  - Alveolitis [Not Recovered/Not Resolved]
  - Interstitial lung disease [Fatal]

NARRATIVE: CASE EVENT DATE: 20171224
